FAERS Safety Report 4715665-4 (Version None)
Quarter: 2005Q3

REPORT INFORMATION
  Report Type: 
  Country: None (occurrence: None)
  Receive Date: 20050715
  Receipt Date: 20050715
  Transmission Date: 20060218
  Serious: Yes (Hospitalization)
  Sender: FDA-Public Use
  Company Number: None

PATIENT
  Age: 53 Year
  Sex: Male

DRUGS (8)
  1. LITHIUM [Suspect]
     Dosage: 600 MG BID ORAL
     Route: 048
     Dates: start: 20050126, end: 20050328
  2. ENALAPRIL [Concomitant]
  3. DOCUSATE [Concomitant]
  4. SIMVASTATIN [Concomitant]
  5. PERPHENAZINE [Concomitant]
  6. OMEPRAZOLE [Concomitant]
  7. GLYBURIDE [Concomitant]
  8. ASPIRIN [Concomitant]

REACTIONS (11)
  - AGITATION [None]
  - ANTIPSYCHOTIC DRUG LEVEL ABOVE THERAPEUTIC [None]
  - CONTRAINDICATION TO MEDICAL TREATMENT [None]
  - DIABETES INSIPIDUS [None]
  - HAEMODIALYSIS [None]
  - HYPERKALAEMIA [None]
  - MANIA [None]
  - NAUSEA [None]
  - RENAL FAILURE ACUTE [None]
  - SPEECH DISORDER [None]
  - VOMITING [None]
